FAERS Safety Report 19701477 (Version 2)
Quarter: 2021Q3

REPORT INFORMATION
  Report Type: Spontaneous
  Country: US (occurrence: US)
  Receive Date: 20210813
  Receipt Date: 20210817
  Transmission Date: 20211014
  Serious: No
  Sender: FDA-Public Use
  Company Number: US-PFIZER INC-202100978562

PATIENT
  Age: 79 Year
  Sex: Female

DRUGS (1)
  1. ESTROGENS CONJUGATED/MEDROXYPROGESTERONE ACETATE [Suspect]
     Active Substance: ESTROGENS, CONJUGATED\MEDROXYPROGESTERONE ACETATE
     Indication: OSTEITIS DEFORMANS
     Dosage: UNK

REACTIONS (2)
  - Gait inability [Unknown]
  - Off label use [Unknown]
